FAERS Safety Report 15916403 (Version 3)
Quarter: 2019Q2

REPORT INFORMATION
  Report Type: Report from Study
  Country: None (occurrence: US)
  Receive Date: 20190204
  Receipt Date: 20190416
  Transmission Date: 20190711
  Serious: Yes (Hospitalization)
  Sender: FDA-Public Use
  Company Number: US-ABBVIE-19K-163-2647123-00

PATIENT
  Age: 64 Year
  Sex: Female
  Weight: 89.89 kg

DRUGS (1)
  1. HUMIRA [Suspect]
     Active Substance: ADALIMUMAB
     Indication: PSORIATIC ARTHROPATHY
     Route: 058
     Dates: start: 20181217

REACTIONS (18)
  - Eosinophil count decreased [Unknown]
  - Blood triglycerides increased [Unknown]
  - Sinusitis [Recovering/Resolving]
  - Vertigo [Recovered/Resolved]
  - Low density lipoprotein increased [Unknown]
  - Blood lactate dehydrogenase increased [Unknown]
  - Blood cholesterol increased [Unknown]
  - Microsleep [Recovered/Resolved]
  - Neutrophil count decreased [Unknown]
  - Total cholesterol/HDL ratio [Unknown]
  - Lymphocyte count increased [Unknown]
  - Nasopharyngitis [Recovering/Resolving]
  - Non-high-density lipoprotein cholesterol [Unknown]
  - Panic attack [Recovered/Resolved]
  - Pharyngitis [Recovering/Resolving]
  - White blood cell count decreased [Recovering/Resolving]
  - Monocyte count increased [Unknown]
  - Platelet count decreased [Unknown]

NARRATIVE: CASE EVENT DATE: 20181218
